FAERS Safety Report 9199978 (Version 1)
Quarter: 2013Q1

REPORT INFORMATION
  Report Type: Spontaneous
  Country: US (occurrence: US)
  Receive Date: 20130329
  Receipt Date: 20130329
  Transmission Date: 20140127
  Serious: No
  Sender: FDA-Public Use
  Company Number: US-ROCHE-1207182

PATIENT
  Sex: Male
  Weight: 15.44 kg

DRUGS (2)
  1. TAMIFLU [Suspect]
     Indication: INFLUENZA
     Dosage: 12.5 ML TWICE DAILY
     Route: 065
     Dates: start: 201212
  2. TAMIFLU [Suspect]
     Route: 065

REACTIONS (2)
  - Influenza [Unknown]
  - Medication error [Unknown]
